FAERS Safety Report 25280380 (Version 2)
Quarter: 2025Q2

REPORT INFORMATION
  Report Type: Spontaneous
  Country: US (occurrence: None)
  Receive Date: 20250507
  Receipt Date: 20250603
  Transmission Date: 20250717
  Serious: No
  Sender: Alvotech
  Company Number: US-ALVOTECHPMS-2025-ALVOTECHPMS-003676

PATIENT
  Age: 40 Year
  Sex: Female

DRUGS (3)
  1. ADALIMUMAB-RYVK [Suspect]
     Active Substance: ADALIMUMAB-RYVK
     Indication: Psoriasis
     Route: 058
     Dates: start: 202501
  2. VITAMIN D [Concomitant]
     Active Substance: VITAMIN D NOS
     Indication: Supplementation therapy
  3. ZINC [Concomitant]
     Active Substance: ZINC
     Indication: Supplementation therapy

REACTIONS (2)
  - Drug ineffective [Not Recovered/Not Resolved]
  - Skin lesion [Not Recovered/Not Resolved]

NARRATIVE: CASE EVENT DATE: 20250101
